FAERS Safety Report 7683852-1 (Version None)
Quarter: 2011Q3

REPORT INFORMATION
  Report Type: 
  Country: None (occurrence: None)
  Receive Date: 20110815
  Receipt Date: 20110809
  Transmission Date: 20111222
  Serious: Yes (Life-Threatening, Hospitalization, Other)
  Sender: FDA-Public Use
  Company Number: US-SHIRE-ALL1-2011-02072

PATIENT
  Sex: Male
  Weight: 50.34 kg

DRUGS (3)
  1. XOPENEX HFA [Concomitant]
     Indication: ASTHMA
     Dosage: UNK UNK, AS REQ'D (2 PUFFS, EVERY 4-6 HOURS AS NEEDED)
     Route: 055
  2. VYVANSE [Suspect]
     Indication: ATTENTION DEFICIT/HYPERACTIVITY DISORDER
     Dosage: 30 MG, 1X/DAY:QD
     Route: 048
     Dates: start: 20080723, end: 20110415
  3. ADVAIR DISKUS 100/50 [Concomitant]
     Indication: ASTHMA
     Dosage: (500/100),  2X/DAY:BID
     Route: 055

REACTIONS (2)
  - DEPRESSION [None]
  - SUICIDE ATTEMPT [None]
